FAERS Safety Report 23509650 (Version 3)
Quarter: 2024Q1

REPORT INFORMATION
  Report Type: Spontaneous
  Country: JP (occurrence: JP)
  Receive Date: 20240210
  Receipt Date: 20240323
  Transmission Date: 20240410
  Serious: Yes (Death, Hospitalization, Other)
  Sender: FDA-Public Use
  Company Number: JP-UNITED THERAPEUTICS-UNT-2023-034801

PATIENT
  Age: 59 Year
  Sex: Male
  Weight: 75 kg

DRUGS (8)
  1. TYVASO [Suspect]
     Active Substance: TREPROSTINIL
     Indication: Pulmonary arterial hypertension
     Dosage: 18 ?G, QID
     Dates: start: 20231129, end: 20231205
  2. TYVASO [Suspect]
     Active Substance: TREPROSTINIL
     Dosage: 36 ?G, QID
     Dates: start: 20231206, end: 20231227
  3. TYVASO [Suspect]
     Active Substance: TREPROSTINIL
     Dosage: 36 ?G, QID
     Dates: end: 202401
  4. TYVASO [Suspect]
     Active Substance: TREPROSTINIL
     Dosage: UNK
     Dates: start: 20231128
  5. PREDONINE [Concomitant]
     Active Substance: PREDNISOLONE
     Indication: Product used for unknown indication
     Dosage: 35 MG, QD
     Route: 065
     Dates: start: 20200129, end: 20240131
  6. PROGRAF [Concomitant]
     Active Substance: TACROLIMUS
     Indication: Product used for unknown indication
     Dosage: 4 MG, QD
     Route: 065
     Dates: start: 20200205, end: 20240122
  7. OFEV [Concomitant]
     Active Substance: NINTEDANIB
     Indication: Product used for unknown indication
     Dosage: 300 MG, QD
     Route: 065
     Dates: start: 20230816, end: 20240131
  8. AZOSEMIDE [Concomitant]
     Active Substance: AZOSEMIDE
     Indication: Product used for unknown indication
     Dosage: 30 MG, QD
     Route: 065
     Dates: start: 20240110, end: 20240131

REACTIONS (9)
  - Interstitial lung disease [Fatal]
  - Dyspnoea [Recovering/Resolving]
  - Lung disorder [Unknown]
  - Condition aggravated [Unknown]
  - Haemoptysis [Recovering/Resolving]
  - Pulmonary hypertension [Unknown]
  - Cardiac failure [Unknown]
  - Fungal infection [Unknown]
  - Larynx irritation [Unknown]

NARRATIVE: CASE EVENT DATE: 20231213
